FAERS Safety Report 4448162-4 (Version None)
Quarter: 2004Q3

REPORT INFORMATION
  Report Type: 
  Country: None (occurrence: None)
  Receive Date: 20040812
  Receipt Date: 20040622
  Transmission Date: 20050211
  Serious: No
  Sender: FDA-Public Use
  Company Number: USA040670540

PATIENT
  Age: 86 Year
  Sex: Male
  Weight: 73 kg

DRUGS (4)
  1. CIALIS [Suspect]
     Indication: ERECTILE DYSFUNCTION
     Dosage: 20 MG
     Dates: start: 20040601
  2. TRIAMTERENE [Concomitant]
  3. WATER PILLS [Concomitant]
  4. 'PROSTATE MEDICATION' [Concomitant]

REACTIONS (1)
  - HEADACHE [None]
